FAERS Safety Report 17197412 (Version 1)
Quarter: 2019Q4

REPORT INFORMATION
  Report Type: Spontaneous
  Country: IT (occurrence: IT)
  Receive Date: 20191224
  Receipt Date: 20191224
  Transmission Date: 20200122
  Serious: Yes (Hospitalization, Other)
  Sender: FDA-Public Use
  Company Number: IT-JNJFOC-20191230273

PATIENT
  Age: 28 Year
  Sex: Male

DRUGS (9)
  1. RISPERDAL [Suspect]
     Active Substance: RISPERIDONE
     Route: 048
  2. DELORAZEPAM [Concomitant]
     Active Substance: DELORAZEPAM
  3. INVEGA [Suspect]
     Active Substance: PALIPERIDONE
     Route: 048
  4. RISPERDAL [Suspect]
     Active Substance: RISPERIDONE
     Indication: SCHIZOPHRENIA
     Route: 048
  5. ARIPIPRAZOLE. [Concomitant]
     Active Substance: ARIPIPRAZOLE
     Route: 048
  6. ABILIFY MAINTENA [Concomitant]
     Active Substance: ARIPIPRAZOLE
     Route: 030
  7. INVEGA [Suspect]
     Active Substance: PALIPERIDONE
     Route: 048
  8. ABILIFY MAINTENA [Concomitant]
     Active Substance: ARIPIPRAZOLE
     Route: 030
  9. INVEGA [Suspect]
     Active Substance: PALIPERIDONE
     Indication: SCHIZOPHRENIA
     Route: 048

REACTIONS (2)
  - Treatment noncompliance [Unknown]
  - Drug abuse [Not Recovered/Not Resolved]
